FAERS Safety Report 20409287 (Version 5)
Quarter: 2022Q3

REPORT INFORMATION
  Report Type: Other
  Country: KR (occurrence: None)
  Receive Date: 20220201
  Receipt Date: 20220809
  Transmission Date: 20221026
  Serious: Yes (Hospitalization, Other)
  Sender: FDA-Public Use
  Company Number: KR-ROCHE-3010311

PATIENT
  Age: 60 Year
  Sex: Male
  Weight: 49.1 kg

DRUGS (17)
  1. ATEZOLIZUMAB [Suspect]
     Active Substance: ATEZOLIZUMAB
     Indication: Hepatocellular carcinoma
     Route: 041
     Dates: start: 20211224
  2. ATEZOLIZUMAB [Suspect]
     Active Substance: ATEZOLIZUMAB
     Route: 041
     Dates: start: 20220122
  3. BEVACIZUMAB [Suspect]
     Active Substance: BEVACIZUMAB
     Indication: Hepatocellular carcinoma
     Dosage: NEXT DOSE ON 22/JAN/2022
     Route: 042
     Dates: start: 20211224
  4. BEVACIZUMAB [Suspect]
     Active Substance: BEVACIZUMAB
     Route: 042
     Dates: start: 20220122
  5. AMINO ACIDS, SOURCE UNSPECIFIED [Concomitant]
     Active Substance: AMINO ACIDS, SOURCE UNSPECIFIED
     Dosage: 1 PACK
     Route: 048
     Dates: start: 20211115
  6. ALDACTONE [Concomitant]
     Active Substance: SPIRONOLACTONE
     Indication: Ascites
     Route: 048
     Dates: start: 20211113
  7. FURIX (SOUTH KOREA) [Concomitant]
     Indication: Ascites
     Route: 048
     Dates: start: 20211113
  8. LANSOPRAZOLE [Concomitant]
     Active Substance: LANSOPRAZOLE
     Indication: Gastric ulcer
     Route: 048
     Dates: start: 20211116
  9. GODEX (SOUTH KOREA) [Concomitant]
     Dosage: 2 CAP
     Route: 048
     Dates: start: 20211113
  10. URSODIOL [Concomitant]
     Active Substance: URSODIOL
     Route: 048
     Dates: start: 20211115
  11. BARACLUDE [Concomitant]
     Active Substance: ENTECAVIR
     Indication: Hepatitis B
     Route: 048
     Dates: start: 20211117
  12. LACTULOSE [Concomitant]
     Active Substance: LACTULOSE
     Indication: Constipation
     Route: 065
     Dates: start: 20211113
  13. CEFACLOR [Concomitant]
     Active Substance: CEFACLOR
     Indication: Prophylaxis
     Route: 048
     Dates: start: 20220112, end: 20220125
  14. FLASINYL [Concomitant]
     Indication: Prophylaxis
     Route: 048
     Dates: start: 20220112, end: 20220125
  15. EXAD [Concomitant]
     Indication: Gastric ulcer
     Route: 048
     Dates: start: 20220109
  16. PIPERACILLIN SODIUM\TAZOBACTAM SODIUM [Concomitant]
     Active Substance: PIPERACILLIN SODIUM\TAZOBACTAM SODIUM
     Indication: Pyrexia
     Dosage: 1 VIAL
     Route: 042
     Dates: start: 20220220
  17. SPIRIVA RESPIMAT [Concomitant]
     Active Substance: TIOTROPIUM BROMIDE
     Indication: Ascites
     Route: 048
     Dates: start: 20220221

REACTIONS (5)
  - Anal abscess [Recovered/Resolved]
  - Decreased appetite [Recovering/Resolving]
  - Localised oedema [Recovering/Resolving]
  - Hyponatraemia [Recovering/Resolving]
  - Dyspnoea [Recovered/Resolved]

NARRATIVE: CASE EVENT DATE: 20211231
